FAERS Safety Report 11135169 (Version 1)
Quarter: 2015Q2

REPORT INFORMATION
  Report Type: Spontaneous
  Country: US (occurrence: US)
  Receive Date: 20150525
  Receipt Date: 20150525
  Transmission Date: 20150821
  Serious: No
  Sender: FDA-Public Use
  Company Number: US-009507513-1505USA003098

PATIENT
  Sex: Male

DRUGS (1)
  1. BELSOMRA [Suspect]
     Active Substance: SUVOREXANT
     Dosage: 1 TABLET, QD
     Route: 048
     Dates: start: 201504, end: 201504

REACTIONS (2)
  - Agitation [Recovered/Resolved]
  - Feeling abnormal [Recovered/Resolved]

NARRATIVE: CASE EVENT DATE: 201504
